FAERS Safety Report 16663921 (Version 1)
Quarter: 2019Q3

REPORT INFORMATION
  Report Type: Spontaneous
  Country: US (occurrence: US)
  Receive Date: 20190619
  Receipt Date: 20190619
  Transmission Date: 20191004
  Serious: No
  Sender: FDA-Public Use
  Company Number: None

PATIENT
  Age: 62 Year
  Sex: Female

DRUGS (1)
  1. REPATHA [Suspect]
     Active Substance: EVOLOCUMAB
     Indication: HYPERLIPIDAEMIA
     Route: 058
     Dates: start: 20190614

REACTIONS (5)
  - Urticaria [None]
  - Cough [None]
  - Throat irritation [None]
  - Drug hypersensitivity [None]
  - Nasopharyngitis [None]

NARRATIVE: CASE EVENT DATE: 20190619
